FAERS Safety Report 9334426 (Version 1)
Quarter: 2013Q2

REPORT INFORMATION
  Report Type: Spontaneous
  Country: US (occurrence: US)
  Receive Date: 20130606
  Receipt Date: 20130606
  Transmission Date: 20140414
  Serious: No
  Sender: FDA-Public Use
  Company Number: US-AMGEN-USASP2013028049

PATIENT
  Age: 76 Year
  Sex: Female

DRUGS (4)
  1. PROLIA [Suspect]
     Indication: OSTEOPOROSIS
     Dosage: 60 MG, Q6MO
     Route: 058
     Dates: start: 20111025
  2. CALCIUM [Concomitant]
  3. VITAMIN D                          /00107901/ [Concomitant]
  4. ANTIHYPERTENSIVES [Concomitant]

REACTIONS (4)
  - Pain [Unknown]
  - Gait disturbance [Unknown]
  - Inappropriate schedule of drug administration [Unknown]
  - Pain in extremity [Unknown]
